FAERS Safety Report 8955375 (Version 1)
Quarter: 2012Q4

REPORT INFORMATION
  Report Type: Spontaneous
  Country: GB (occurrence: None)
  Receive Date: 20121130
  Receipt Date: 20121130
  Transmission Date: 20130627
  Serious: Yes (Life-Threatening, Disabling, Other)
  Sender: FDA-Public Use
  Company Number: AUR-APL-2012-05046

PATIENT
  Age: 28 Year
  Sex: Female
  Weight: 40.5 kg

DRUGS (2)
  1. CITALOPRAM (CITALOPRAM) [Suspect]
     Indication: DEPRESSION AGGRAVATED
     Route: 048
     Dates: start: 20100710, end: 20100831
  2. AMITRIPTYLINE (AMITRIPTYLINE) [Concomitant]

REACTIONS (6)
  - Palpitations [None]
  - Depersonalisation [None]
  - Dissociation [None]
  - Emotional distress [None]
  - Emotional disorder [None]
  - Hypoaesthesia [None]
